FAERS Safety Report 15580792 (Version 1)
Quarter: 2018Q4

REPORT INFORMATION
  Report Type: Spontaneous
  Country: US (occurrence: US)
  Receive Date: 20181102
  Receipt Date: 20181102
  Transmission Date: 20190205
  Serious: Yes (Hospitalization)
  Sender: FDA-Public Use
  Company Number: US-TEVA-2018-US-969464

PATIENT

DRUGS (3)
  1. METHOTINJ [Suspect]
     Active Substance: METHOTREXATE
     Indication: BREAST CANCER METASTATIC
     Dosage: FORM STRENGTH: 25 MG/ML, 1 GM
     Route: 065
     Dates: start: 20181022
  2. LEUCOVORIN. [Suspect]
     Active Substance: LEUCOVORIN
     Route: 065
  3. VORAXAZE [Suspect]
     Active Substance: GLUCARPIDASE
     Route: 065

REACTIONS (2)
  - Blood creatinine increased [Unknown]
  - Drug clearance decreased [Unknown]

NARRATIVE: CASE EVENT DATE: 20181022
